FAERS Safety Report 15467053 (Version 1)
Quarter: 2018Q4

REPORT INFORMATION
  Report Type: Spontaneous
  Country: US (occurrence: US)
  Receive Date: 20181005
  Receipt Date: 20181005
  Transmission Date: 20190204
  Serious: No
  Sender: FDA-Public Use
  Company Number: US-HIKMA PHARMACEUTICALS USA INC.-US-H14001-17-04118

PATIENT
  Age: 39 Year
  Sex: Female
  Weight: 134.84 kg

DRUGS (1)
  1. DEXAMETHASONE SODIUM PHOSPHATE. [Suspect]
     Active Substance: DEXAMETHASONE SODIUM PHOSPHATE
     Indication: NECK PAIN
     Route: 030
     Dates: start: 20171005, end: 20171005

REACTIONS (4)
  - Injection site erythema [Unknown]
  - Injection site rash [Unknown]
  - Injection site pain [Unknown]
  - Injection site pruritus [Unknown]

NARRATIVE: CASE EVENT DATE: 20171009
